FAERS Safety Report 7444579-4 (Version None)
Quarter: 2011Q2

REPORT INFORMATION
  Report Type: 
  Country: None (occurrence: None)
  Receive Date: 20110429
  Receipt Date: 20110426
  Transmission Date: 20111010
  Serious: Yes (Death, Other)
  Sender: FDA-Public Use
  Company Number: NL-PFIZER INC-2011038946

PATIENT
  Sex: Male
  Weight: 80 kg

DRUGS (1)
  1. LYRICA [Suspect]
     Indication: COMPLEX REGIONAL PAIN SYNDROME
     Dosage: 150 MG, 2X/DAY
     Dates: start: 20070101

REACTIONS (6)
  - DEATH [None]
  - SPEECH DISORDER [None]
  - RESTLESSNESS [None]
  - COORDINATION ABNORMAL [None]
  - DISORIENTATION [None]
  - AMNESIA [None]
